FAERS Safety Report 5730451-4 (Version None)
Quarter: 2008Q2

REPORT INFORMATION
  Report Type: 
  Country: None (occurrence: None)
  Receive Date: 20080507
  Receipt Date: 20080425
  Transmission Date: 20081010
  Serious: Yes (Hospitalization)
  Sender: FDA-Public Use
  Company Number: US-GENENTECH-249323

PATIENT
  Sex: Female
  Weight: 102 kg

DRUGS (7)
  1. BEVACIZUMAB [Suspect]
     Indication: PANCREATIC CARCINOMA
     Dosage: 1040 MG, UNK
     Route: 042
     Dates: start: 20070821
  2. BEVACIZUMAB [Suspect]
     Dosage: 1040 MG, SINGLE
     Route: 042
     Dates: start: 20070905
  3. BEVACIZUMAB [Suspect]
     Dosage: 1040 MG, SINGLE
     Route: 042
     Dates: start: 20070919
  4. GEMCITABINE [Concomitant]
     Indication: PANCREATIC CARCINOMA
     Dosage: 3285 MG, UNK
     Dates: start: 20070821
  5. GEMCITABINE [Concomitant]
     Dates: start: 20070905
  6. GEMCITABINE [Concomitant]
     Dates: start: 20070919
  7. PROTONIX [Concomitant]
     Indication: DRUG USE FOR UNKNOWN INDICATION
     Dosage: 40 MG, QD

REACTIONS (2)
  - CHOLANGITIS [None]
  - PYREXIA [None]
